FAERS Safety Report 5025907-6 (Version None)
Quarter: 2006Q2

REPORT INFORMATION
  Report Type: 
  Country: None (occurrence: None)
  Receive Date: 20060612
  Receipt Date: 20060612
  Transmission Date: 20061013
  Serious: No
  Sender: FDA-Public Use
  Company Number: None

PATIENT
  Age: 64 Year
  Sex: Male

DRUGS (11)
  1. CORDARONE [Suspect]
     Dates: start: 19990913, end: 20050101
  2. ADVAIR DISKUS 100/50 [Concomitant]
  3. IMDR [Concomitant]
  4. PANTOPRAZOLE [Concomitant]
  5. SYNTHROID [Concomitant]
  6. PROPRANOLOL [Concomitant]
  7. LATCULOSE [Concomitant]
  8. ALBUTEROL [Concomitant]
  9. ATROVENT [Concomitant]
  10. COUMADIN [Concomitant]
  11. PHENARGAN [Concomitant]

REACTIONS (6)
  - ASCITES [None]
  - DRUG TOXICITY [None]
  - HEPATIC CIRRHOSIS [None]
  - JAUNDICE [None]
  - LIVER DISORDER [None]
  - RENAL FAILURE [None]
